FAERS Safety Report 4335150-1 (Version None)
Quarter: 2004Q2

REPORT INFORMATION
  Report Type: 
  Country: None (occurrence: None)
  Receive Date: 20040402
  Receipt Date: 20040217
  Transmission Date: 20050107
  Serious: No
  Sender: FDA-Public Use
  Company Number: 234675

PATIENT
  Age: 15 Year
  Sex: Male
  Weight: 68 kg

DRUGS (2)
  1. NOVOLOG [Suspect]
     Indication: DIABETES MELLITUS INSULIN-DEPENDENT
     Dosage: 32 1 IU, QD; SUBCUTANEOUS
     Route: 058
     Dates: start: 20020101
  2. DISETRONIC H-TRON PLUS INSULIN PUMP [Concomitant]

REACTIONS (1)
  - DIABETIC KETOACIDOSIS [None]
